FAERS Safety Report 7844485-7 (Version None)
Quarter: 2011Q4

REPORT INFORMATION
  Report Type: 
  Country: None (occurrence: None)
  Receive Date: 20111025
  Receipt Date: 20111005
  Transmission Date: 20120403
  Serious: Yes (Death, Other)
  Sender: FDA-Public Use
  Company Number: US-BAYER-200940541NA

PATIENT
  Age: 49 Year
  Sex: Female
  Weight: 59 kg

DRUGS (27)
  1. DAYPRO [Concomitant]
     Dosage: 600 MG, BID
     Route: 048
  2. PREDNISONE [Concomitant]
     Dosage: 10 MG, BID
     Route: 048
  3. VANCOMYCIN HCL [Concomitant]
     Dosage: 1000 MG, UNK
     Route: 042
  4. DOPAMINE HCL [Concomitant]
     Dosage: 400MG/10 ML PER HOUR
     Route: 042
  5. IMURAN [Concomitant]
     Dosage: 50 MG, BID
     Route: 048
  6. NICOTINE [Concomitant]
  7. LIDOCAINE [Concomitant]
     Dosage: UNK
     Dates: start: 20071207
  8. HEPARIN [Concomitant]
     Dosage: 1000 U, UNK
     Route: 042
  9. NITROGLYCERIN [Concomitant]
     Dosage: 50 MG/10 ML PER HOUR
     Route: 042
  10. TRAMADOL HCL [Concomitant]
     Dosage: 50 MG, TID
     Route: 048
  11. BENADRYL [Concomitant]
     Dosage: UNK
     Dates: start: 20071207
  12. FRESH FROZEN PLASMA [Concomitant]
     Dosage: 3 UNITS
     Route: 042
     Dates: start: 20071207
  13. DIGOXIN [Concomitant]
     Dosage: 0.125 MG, UNK
     Route: 048
  14. PAPAVERINE [Concomitant]
     Dosage: UNK
     Dates: start: 20071207
  15. TOPROL-XL [Concomitant]
     Dosage: 25 MG, QD
     Route: 048
  16. VERAPAMIL [Concomitant]
     Dosage: 60 MG, EVERY 8 HOURS
     Route: 048
  17. VERSED [Concomitant]
     Dosage: UNK
     Dates: start: 20071207
  18. LASIX [Concomitant]
     Dosage: UNK
     Dates: start: 20071207
  19. MAGNESIUM SULFATE [Concomitant]
     Dosage: UNK
     Dates: start: 20071207
  20. CALCIUM CHLORIDE [Concomitant]
     Dosage: UNK
     Dates: start: 20071207
  21. PLAQUENIL [Concomitant]
     Dosage: 200 MG, QD
     Route: 048
  22. HEPARIN [Concomitant]
     Dosage: 2000 UNITS
     Route: 042
  23. TRASYLOL [Suspect]
     Indication: CORONARY ARTERY BYPASS
     Dosage: 200 ML PUMP PRIME
     Route: 042
     Dates: start: 20071207
  24. FENTANYL-100 [Concomitant]
     Dosage: UNK
     Dates: start: 20071207
  25. OMNIPAQUE 140 [Concomitant]
     Dosage: UNK
     Route: 042
     Dates: start: 20071203
  26. PLATELETS [Concomitant]
     Dosage: 1 UNIT
     Route: 042
     Dates: start: 20071207
  27. DOXEPIN [Concomitant]
     Dosage: 25 MG/AT BEDTIME
     Route: 048

REACTIONS (14)
  - MULTI-ORGAN FAILURE [None]
  - DEATH [None]
  - ANXIETY [None]
  - RENAL IMPAIRMENT [None]
  - STRESS [None]
  - INJURY [None]
  - RENAL INJURY [None]
  - EMOTIONAL DISTRESS [None]
  - MENTAL DISORDER [None]
  - UNEVALUABLE EVENT [None]
  - PAIN [None]
  - ANHEDONIA [None]
  - RENAL FAILURE [None]
  - FEAR [None]
